FAERS Safety Report 18058241 (Version 2)
Quarter: 2020Q4

REPORT INFORMATION
  Report Type: Spontaneous
  Country: FR (occurrence: FR)
  Receive Date: 20200723
  Receipt Date: 20201217
  Transmission Date: 20210113
  Serious: Yes (Hospitalization)
  Sender: FDA-Public Use
  Company Number: FR-AUROBINDO-AUR-APL-2020-036186

PATIENT
  Age: 82 Year
  Sex: Male

DRUGS (2)
  1. ADVAGRAF [Interacting]
     Active Substance: TACROLIMUS
     Indication: RENAL TRANSPLANT
     Dosage: 1 MILLIGRAM, ONCE A DAY
     Route: 048
     Dates: start: 2015, end: 20200703
  2. CLARITHROMYCIN. [Suspect]
     Active Substance: CLARITHROMYCIN
     Indication: HELICOBACTER INFECTION
     Dosage: 1 MILLIGRAM, ONCE A DAY
     Route: 048
     Dates: start: 20200611, end: 20200625

REACTIONS (4)
  - Vomiting [Recovered/Resolved]
  - Product prescribing error [Recovered/Resolved]
  - Hepatitis [Recovered/Resolved]
  - Immunosuppressant drug level increased [Recovered/Resolved]

NARRATIVE: CASE EVENT DATE: 202006
